FAERS Safety Report 7892946-7 (Version None)
Quarter: 2011Q4

REPORT INFORMATION
  Report Type: 
  Country: None (occurrence: None)
  Receive Date: 20111104
  Receipt Date: 20111031
  Transmission Date: 20120403
  Serious: Yes (Other)
  Sender: FDA-Public Use
  Company Number: US-BRISTOL-MYERS SQUIBB COMPANY-16207458

PATIENT

DRUGS (1)
  1. YERVOY [Suspect]
     Dosage: RECEIVED 3RD DOSE THREE WEEKS AGO

REACTIONS (3)
  - IRON DEFICIENCY [None]
  - GASTROINTESTINAL HAEMORRHAGE [None]
  - HAEMOGLOBIN DECREASED [None]
